FAERS Safety Report 10081320 (Version 1)
Quarter: 2014Q2

REPORT INFORMATION
  Report Type: Spontaneous
  Country: FI (occurrence: None)
  Receive Date: 20140414
  Receipt Date: 20140414
  Transmission Date: 20141212
  Serious: Yes (Death)
  Sender: FDA-Public Use
  Company Number: FI-MDCO-14-00095

PATIENT
  Age: 86 Year
  Sex: Female

DRUGS (13)
  1. ANGIOX [Suspect]
     Indication: PERCUTANEOUS CORONARY INTERVENTION
     Route: 040
     Dates: start: 20140124, end: 20140124
  2. ASA (ACESTYLSALICYLIC ACID) [Concomitant]
  3. PRASUGREL (PRASUGREL) [Concomitant]
  4. KLEXANE (ENOXAPARIN SODIUM) [Concomitant]
  5. LIDOCAIN (LIDOCAINE) [Concomitant]
  6. HEXABRIX (HEXABRIX) [Concomitant]
  7. INTEGRILLIN (EPTIFIBATIDE) [Concomitant]
  8. PRIMPERAN (METOCLOPRAMIDE HYDROCHLORIDE) [Concomitant]
  9. FENTANYL (FENTANYL) [Concomitant]
  10. ATROPIN (ATROPINE) [Concomitant]
  11. STESOLID (DIAZEPAM) [Concomitant]
  12. NITROPRESS (NITROPRUSSIDE SODIUM) [Concomitant]
  13. SALINE (SODIUM CJLORIDE) [Concomitant]

REACTIONS (7)
  - Coronary artery thrombosis [None]
  - Cardiac failure [None]
  - Coagulation time shortened [None]
  - Blood pressure systolic decreased [None]
  - Heart rate decreased [None]
  - Oxygen saturation decreased [None]
  - Procedural complication [None]
